FAERS Safety Report 7538832-3 (Version None)
Quarter: 2011Q2

REPORT INFORMATION
  Report Type: 
  Country: None (occurrence: None)
  Receive Date: 20110610
  Receipt Date: 20110512
  Transmission Date: 20111010
  Serious: Yes (Other)
  Sender: FDA-Public Use
  Company Number: US-BAYER-201027726NA

PATIENT
  Age: 34 Year
  Sex: Female
  Weight: 70.295 kg

DRUGS (4)
  1. ANTIBIOTICS [Concomitant]
  2. IBUPROFEN [Concomitant]
     Dosage: UNK UNK, PRN
  3. YASMIN [Suspect]
     Indication: CONTRACEPTION
     Dosage: UNK UNK, UNK
     Route: 048
     Dates: start: 20000101, end: 20100601
  4. DROSPIRENONE AND ETHINYL ESTRADIOL [Suspect]
     Indication: CONTRACEPTION
     Dosage: UNK UNK, UNK
     Route: 048
     Dates: start: 20000101, end: 20100601

REACTIONS (3)
  - GALLBLADDER DISORDER [None]
  - CHOLECYSTITIS [None]
  - PAIN [None]
